FAERS Safety Report 22110089 (Version 1)
Quarter: 2023Q1

REPORT INFORMATION
  Report Type: Report from Study
  Country: DE (occurrence: DE)
  Receive Date: 20230317
  Receipt Date: 20230317
  Transmission Date: 20230418
  Serious: Yes (Death, Hospitalization, Other)
  Sender: FDA-Public Use
  Company Number: DE-ACTELION-A-CH2019-191361

PATIENT
  Age: 68 Year
  Sex: Male
  Weight: 66 kg

DRUGS (21)
  1. UPTRAVI [Suspect]
     Active Substance: SELEXIPAG
     Indication: Pulmonary arterial hypertension
     Dosage: 1400 MCG, QD
     Route: 048
     Dates: start: 20181206, end: 201907
  2. UPTRAVI [Suspect]
     Active Substance: SELEXIPAG
     Dosage: 400 MCG, QD
     Route: 048
     Dates: start: 20181115, end: 20181121
  3. UPTRAVI [Suspect]
     Active Substance: SELEXIPAG
     Dosage: 800 MCG, QD
     Route: 048
     Dates: start: 20181122, end: 20181128
  4. UPTRAVI [Suspect]
     Active Substance: SELEXIPAG
     Dosage: 1200 MCG, QD
     Route: 048
     Dates: start: 20181129, end: 20181205
  5. UPTRAVI [Suspect]
     Active Substance: SELEXIPAG
     Dosage: 1400 MCG, QD, THERAPY START DATE-2019
     Route: 048
     Dates: end: 20191110
  6. OPSUMIT [Suspect]
     Active Substance: MACITENTAN
     Indication: Pulmonary arterial hypertension
     Dosage: 10 MG, QD
     Route: 048
     Dates: start: 2016, end: 20191110
  7. TADALAFIL [Concomitant]
     Active Substance: TADALAFIL
     Indication: Pulmonary arterial hypertension
     Dosage: 40 MG, QD
     Route: 048
     Dates: start: 2016, end: 20190418
  8. PANTOZOL [Concomitant]
     Active Substance: PANTOPRAZOLE SODIUM
     Indication: Hyperchlorhydria
     Dosage: 40 MG, BID
     Route: 048
     Dates: start: 20181221
  9. LEVOTHYROXINE SODIUM [Concomitant]
     Active Substance: LEVOTHYROXINE SODIUM
     Indication: Hypothyroidism
     Dosage: 100 MCG, OD
     Route: 048
  10. TORSEMIDE [Concomitant]
     Active Substance: TORSEMIDE
     Indication: Diuretic therapy
     Dosage: 40 MG, BID
     Route: 048
  11. POLYETHYLENE GLYCOLS [Concomitant]
     Active Substance: POLYETHYLENE GLYCOLS
     Indication: Constipation
     Dosage: 1 DF, OD
     Route: 048
     Dates: start: 201907
  12. SPIRONOLACTONE [Concomitant]
     Active Substance: SPIRONOLACTONE
     Indication: Diuretic therapy
     Dosage: 25 MG, OD
     Dates: start: 201907
  13. MORPHINE SULFATE [Concomitant]
     Active Substance: MORPHINE SULFATE
     Dosage: 10 MG, TID
     Dates: start: 201910
  14. XIPAMIDE [Concomitant]
     Active Substance: XIPAMIDE
     Indication: Diuretic therapy
     Dosage: 10 MG, OD, THERAPY START DATE -2019
  15. ALDACTONE [Concomitant]
     Active Substance: SPIRONOLACTONE
     Indication: Diuretic therapy
     Dosage: 25 MG, OD, THERAPY START DATE-2019
  16. SODIUM PICOSULFATE [Concomitant]
     Active Substance: SODIUM PICOSULFATE
     Indication: Laxative supportive care
     Dosage: UNK , OD, THERAPY START DATE-2019
  17. ZOPICLONE [Concomitant]
     Active Substance: ZOPICLONE
     Indication: Sleep disorder
     Dosage: 7.5 MG, OD
  18. ZOPICLONE [Concomitant]
     Active Substance: ZOPICLONE
     Dosage: 5 MG, PRN
     Dates: start: 201910
  19. MORPHINE SULFATE [Concomitant]
     Active Substance: MORPHINE SULFATE
     Indication: Pain
     Dosage: 5 MG, PRN
     Dates: start: 201910
  20. TAVOR (LORAZEPAM) [Concomitant]
     Active Substance: LORAZEPAM
     Indication: Restlessness
     Dosage: 1 MG, PRN
     Dates: start: 201910
  21. ADEMPAS [Concomitant]
     Active Substance: RIOCIGUAT
     Dosage: 1.5 MG, QD
     Dates: start: 20190418, end: 201907

REACTIONS (14)
  - Right ventricular failure [Fatal]
  - C-reactive protein increased [Fatal]
  - Pulmonary arterial hypertension [Recovered/Resolved with Sequelae]
  - Condition aggravated [Recovered/Resolved with Sequelae]
  - Disease progression [Recovered/Resolved]
  - Acute kidney injury [Not Recovered/Not Resolved]
  - Creatinine renal clearance abnormal [Not Recovered/Not Resolved]
  - Blood creatinine increased [Not Recovered/Not Resolved]
  - Blood urea increased [Not Recovered/Not Resolved]
  - Gamma-glutamyltransferase increased [Unknown]
  - Hypothyroidism [Not Recovered/Not Resolved]
  - Blood thyroid stimulating hormone increased [Not Recovered/Not Resolved]
  - Weight increased [Unknown]
  - Dyspnoea [Not Recovered/Not Resolved]

NARRATIVE: CASE EVENT DATE: 20181220
